FAERS Safety Report 6470080-0 (Version None)
Quarter: 2009Q4

REPORT INFORMATION
  Report Type: 
  Country: None (occurrence: None)
  Receive Date: 20091203
  Receipt Date: 20091120
  Transmission Date: 20100525
  Serious: Yes (Other)
  Sender: FDA-Public Use
  Company Number: US-JNJFOC-20091106591

PATIENT
  Age: 17 Year
  Sex: Female
  Weight: 37.65 kg

DRUGS (3)
  1. MONISTAT 7 [Suspect]
     Route: 067
     Dates: start: 20091116, end: 20091116
  2. MONISTAT 7 [Suspect]
     Indication: FUNGAL INFECTION
     Route: 067
     Dates: start: 20091116, end: 20091116
  3. ASCORBIC ACID [Concomitant]

REACTIONS (4)
  - ABDOMINAL PAIN [None]
  - ABORTION SPONTANEOUS [None]
  - DRUG EXPOSURE DURING PREGNANCY [None]
  - VAGINAL HAEMORRHAGE [None]
